FAERS Safety Report 6689811-X (Version None)
Quarter: 2010Q2

REPORT INFORMATION
  Report Type: 
  Country: None (occurrence: None)
  Receive Date: 20100412
  Receipt Date: 20100210
  Transmission Date: 20101027
  Serious: No
  Sender: FDA-Public Use
  Company Number: 1000011773

PATIENT
  Age: 64 Year
  Sex: Female
  Weight: 86.1834 kg

DRUGS (10)
  1. BYSTOLIC [Suspect]
     Indication: HYPERTENSION
     Dosage: 5 MG (5 MG, 1 IN 1 D), ORAL,205MG, 1IN1D
     Route: 048
     Dates: start: 20100205, end: 20100207
  2. BYSTOLIC [Suspect]
     Indication: TACHYCARDIA
     Dosage: 5 MG (5 MG, 1 IN 1 D), ORAL,205MG, 1IN1D
     Route: 048
     Dates: start: 20100205, end: 20100207
  3. BYSTOLIC [Suspect]
     Indication: HYPERTENSION
     Dosage: 5 MG (5 MG, 1 IN 1 D), ORAL,205MG, 1IN1D
     Route: 048
     Dates: start: 20100208
  4. BYSTOLIC [Suspect]
     Indication: TACHYCARDIA
     Dosage: 5 MG (5 MG, 1 IN 1 D), ORAL,205MG, 1IN1D
     Route: 048
     Dates: start: 20100208
  5. ACTOS [Concomitant]
  6. LOVASTATIN [Concomitant]
  7. ZETIA [Concomitant]
  8. VITAMIN D [Concomitant]
  9. CITRACAL [Concomitant]
  10. ASPIRIN [Concomitant]

REACTIONS (2)
  - FATIGUE [None]
  - OEDEMA PERIPHERAL [None]
